FAERS Safety Report 9010188 (Version 2)
Quarter: 2014Q1

REPORT INFORMATION
  Report Type: Spontaneous
  Country: US (occurrence: US)
  Receive Date: 20130110
  Receipt Date: 20140117
  Transmission Date: 20141002
  Serious: Yes (Other)
  Sender: FDA-Public Use
  Company Number: US-BAYER-2013-002858

PATIENT
  Age: 31 Year
  Sex: Female
  Weight: 69.39 kg

DRUGS (9)
  1. YASMIN [Suspect]
     Indication: ACNE
  2. YAZ [Suspect]
  3. SYNTHROID [Concomitant]
     Dosage: 75 TO 100 MCG
     Route: 048
     Dates: start: 20070328, end: 20120311
  4. SYNTHROID [Concomitant]
     Dosage: 100 MCG DAILY
     Route: 048
     Dates: start: 20080603
  5. COSOPT [Concomitant]
     Dosage: TWICE DAILY
     Route: 047
     Dates: start: 20080527, end: 20110923
  6. COSOPT [Concomitant]
     Dosage: TWICE DAILY
     Route: 047
     Dates: start: 20080603
  7. LUMIGAN [Concomitant]
     Dosage: AT BEDTIME
     Route: 047
     Dates: start: 20080603
  8. PRED FORTE [Concomitant]
     Dosage: DAILY
     Route: 047
     Dates: start: 20080603
  9. LORTAB [Concomitant]
     Indication: PAIN
     Dosage: 5/500 1 TO 2 EVERY 4 HOURS AS NEEDED

REACTIONS (9)
  - Pulmonary embolism [None]
  - Cholecystectomy [None]
  - Cholecystitis chronic [None]
  - Deep vein thrombosis [None]
  - Cardiac disorder [None]
  - Injury [None]
  - Pain [None]
  - Anxiety [None]
  - Pain [None]
